FAERS Safety Report 6329369-8 (Version None)
Quarter: 2009Q3

REPORT INFORMATION
  Report Type: 
  Country: None (occurrence: None)
  Receive Date: 20090826
  Receipt Date: 20090819
  Transmission Date: 20100115
  Serious: Yes (Death, Hospitalization, Other)
  Sender: FDA-Public Use
  Company Number: US-AVENTIS-200916634US

PATIENT
  Sex: Female
  Weight: 92.53 kg

DRUGS (30)
  1. LANTUS [Suspect]
     Dosage: DOSE: SLIDING SCALE
  2. LANTUS [Suspect]
     Dosage: DOSE: 20 TO 26
     Route: 058
     Dates: end: 20090501
  3. LANTUS [Suspect]
     Route: 058
     Dates: start: 20090518, end: 20090530
  4. RYTHMOL                            /00546302/ [Concomitant]
  5. BUMEX [Concomitant]
  6. KLOR-CON [Concomitant]
     Indication: RENAL DISORDER
  7. ZINC [Concomitant]
  8. NEPHRO-VITE                        /01719801/ [Concomitant]
     Dosage: DOSE: 1 TABLET
     Route: 048
  9. HUMALOG [Concomitant]
     Dosage: DOSE: SLIDING SCALE 5 UNITS TWICE A DAY
  10. DOCUSATE [Concomitant]
     Indication: CONSTIPATION
     Dates: start: 20090517
  11. ENOXAPARIN SODIUM [Concomitant]
     Route: 058
  12. GLIPIZIDE [Concomitant]
     Route: 048
  13. MUCINEX [Concomitant]
     Route: 048
  14. PROCARDIA XL [Concomitant]
     Route: 048
  15. CRANBERRY EXTRACT [Concomitant]
     Dosage: DOSE: UNK
     Route: 048
  16. NYSTATIN [Concomitant]
     Dosage: DOSE: UNK
  17. FLOMAX [Concomitant]
     Route: 048
  18. VITAMIN E [Concomitant]
     Route: 048
  19. PRILOSEC [Concomitant]
  20. SYNTHROID [Concomitant]
  21. NOVOLOG [Concomitant]
     Dosage: DOSE: UNK
     Route: 058
  22. CLARITIN [Concomitant]
     Route: 048
  23. MYLANTA                            /00036701/ [Concomitant]
     Dosage: DOSE: UNK
     Route: 048
  24. MILK OF MAGNESIA TAB [Concomitant]
     Route: 048
  25. CITALOPRAM [Concomitant]
     Indication: DEPRESSION
  26. ALAVERT [Concomitant]
     Dosage: DOSE: UNK
  27. ASCORBIC ACID [Concomitant]
  28. CALCIUM WITH VITAMIN D             /01233101/ [Concomitant]
  29. BETA CAROTENE [Concomitant]
     Dosage: DOSE: 2 CAPSULES
  30. ASPIRIN [Concomitant]

REACTIONS (25)
  - ASTHENIA [None]
  - ATRIAL FIBRILLATION [None]
  - BLOOD CREATININE ABNORMAL [None]
  - BLOOD CREATININE INCREASED [None]
  - BLOOD GLUCOSE FLUCTUATION [None]
  - BLOOD GLUCOSE INCREASED [None]
  - BLOOD UREA ABNORMAL [None]
  - BLOOD UREA INCREASED [None]
  - BRUXISM [None]
  - CARDIAC FAILURE CONGESTIVE [None]
  - CHOKING [None]
  - COLD SWEAT [None]
  - CONVULSION [None]
  - DECREASED APPETITE [None]
  - DYSPHAGIA [None]
  - DYSPNOEA [None]
  - HYPERHIDROSIS [None]
  - HYPOGLYCAEMIA [None]
  - HYPOGLYCAEMIC SEIZURE [None]
  - MOANING [None]
  - MUSCULOSKELETAL STIFFNESS [None]
  - PALLOR [None]
  - RENAL FAILURE [None]
  - RENAL IMPAIRMENT [None]
  - TREMOR [None]
